FAERS Safety Report 6468516-4 (Version None)
Quarter: 2009Q4

REPORT INFORMATION
  Report Type: 
  Country: None (occurrence: None)
  Receive Date: 20091203
  Receipt Date: 20091123
  Transmission Date: 20100525
  Serious: No
  Sender: FDA-Public Use
  Company Number: BE-JNJFOC-20090506037

PATIENT
  Sex: Female

DRUGS (4)
  1. DURAGESIC-100 [Suspect]
     Indication: PAIN
     Route: 062
  2. ZANTAC [Concomitant]
     Indication: ABDOMINAL PAIN UPPER
  3. FELDENE [Concomitant]
     Indication: PAIN
     Route: 065
  4. DEPAKENE [Concomitant]
     Indication: NEURALGIA
     Route: 048

REACTIONS (4)
  - DRUG INEFFECTIVE [None]
  - INAPPROPRIATE SCHEDULE OF DRUG ADMINISTRATION [None]
  - PAIN [None]
  - WITHDRAWAL SYNDROME [None]
